FAERS Safety Report 9640391 (Version 1)
Quarter: 2013Q4

REPORT INFORMATION
  Report Type: Spontaneous
  Country: ZA (occurrence: ZA)
  Receive Date: 20131023
  Receipt Date: 20131023
  Transmission Date: 20140711
  Serious: Yes (Death, Other)
  Sender: FDA-Public Use
  Company Number: ZA-009507513-1310ZAF007794

PATIENT
  Age: 40 Year
  Sex: Female

DRUGS (1)
  1. ESMERON [Suspect]

REACTIONS (1)
  - Cerebrovascular accident [Fatal]
